FAERS Safety Report 6789126-5 (Version None)
Quarter: 2010Q2

REPORT INFORMATION
  Report Type: 
  Country: None (occurrence: None)
  Receive Date: 20100623
  Receipt Date: 20080707
  Transmission Date: 20101027
  Serious: No
  Sender: FDA-Public Use
  Company Number: US-PFIZER INC-2008056133

PATIENT
  Sex: Male

DRUGS (3)
  1. GEODON [Suspect]
     Dates: start: 20080505
  2. MONTELUKAST SODIUM [Concomitant]
  3. CONCERTA [Concomitant]

REACTIONS (1)
  - DRUG SCREEN FALSE POSITIVE [None]
